FAERS Safety Report 5052157-X (Version None)
Quarter: 2006Q3

REPORT INFORMATION
  Report Type: 
  Country: None (occurrence: None)
  Receive Date: 20060714
  Receipt Date: 20060714
  Transmission Date: 20061208
  Serious: Yes (Disabling)
  Sender: FDA-Public Use
  Company Number: None

PATIENT
  Age: 90 Year
  Sex: Female
  Weight: 56.7 kg

DRUGS (6)
  1. LEVAQUIN [Suspect]
     Indication: CELLULITIS
     Dosage: 250 MG Q 24 HOURS IV
     Route: 042
     Dates: start: 20060624, end: 20060624
  2. FUROSEMIDE [Concomitant]
  3. DIOVAN [Concomitant]
  4. SYNTHROID [Concomitant]
  5. TOPROL-XL [Concomitant]
  6. COUMADIN [Concomitant]

REACTIONS (3)
  - ERYTHEMA [None]
  - INFUSION SITE REACTION [None]
  - PRURITUS [None]
